FAERS Safety Report 5118195-3 (Version None)
Quarter: 2006Q3

REPORT INFORMATION
  Report Type: 
  Country: None (occurrence: None)
  Receive Date: 20060927
  Receipt Date: 20060913
  Transmission Date: 20061208
  Serious: Yes (Life-Threatening, Hospitalization)
  Sender: FDA-Public Use
  Company Number: 229892

PATIENT
  Age: 79 Year
  Sex: Male
  Weight: 68 kg

DRUGS (7)
  1. RITUXAN [Suspect]
     Indication: RHEUMATOID ARTHRITIS
     Dosage: 1000 MG, X2, INTRAVENOUS
     Route: 042
     Dates: start: 20060510, end: 20060524
  2. PROTONIX [Concomitant]
  3. PREDNISONE TAB [Concomitant]
  4. ADVAIR DISKUS 100/50 [Concomitant]
  5. LASIX [Concomitant]
  6. TERAZOSIN HCL [Concomitant]
  7. PAMIDRONATE DISODIUM [Concomitant]

REACTIONS (3)
  - PANCREATITIS [None]
  - SEPSIS [None]
  - TACHYCARDIA [None]
